FAERS Safety Report 6272017-6 (Version None)
Quarter: 2009Q3

REPORT INFORMATION
  Report Type: 
  Country: None (occurrence: None)
  Receive Date: 20090717
  Receipt Date: 20090707
  Transmission Date: 20100115
  Serious: Yes (Hospitalization)
  Sender: FDA-Public Use
  Company Number: A0771647A

PATIENT
  Age: 79 Year
  Sex: Male
  Weight: 83.2 kg

DRUGS (6)
  1. AVANDIA [Suspect]
     Indication: BLOOD GLUCOSE
     Dosage: 8MG TWICE PER DAY
     Route: 048
     Dates: start: 20030101, end: 20070626
  2. METFORMIN HCL [Concomitant]
  3. HUMALOG [Concomitant]
  4. GLUCOTROL [Concomitant]
  5. FELODIPINE [Concomitant]
  6. SYNTHROID [Concomitant]

REACTIONS (1)
  - MYOCARDIAL INFARCTION [None]
